FAERS Safety Report 10079113 (Version 2)
Quarter: 2014Q2

REPORT INFORMATION
  Report Type: Spontaneous
  Country: US (occurrence: US)
  Receive Date: 20140415
  Receipt Date: 20140428
  Transmission Date: 20141212
  Serious: Yes (Hospitalization)
  Sender: FDA-Public Use
  Company Number: US-009507513-1404USA005088

PATIENT
  Sex: Female

DRUGS (3)
  1. DULERA [Suspect]
     Indication: CHRONIC OBSTRUCTIVE PULMONARY DISEASE
     Dosage: 100/5 MICROGRAM, 2 PUFFS, BID
     Route: 055
     Dates: start: 2012
  2. DULERA [Suspect]
     Dosage: 200/5 MICROGRAM, 2 PUFFS BID
     Route: 055
  3. OXYGEN [Concomitant]

REACTIONS (5)
  - Chest pain [Recovering/Resolving]
  - Product quality issue [Unknown]
  - Drug dose omission [Unknown]
  - Drug ineffective [Recovering/Resolving]
  - Off label use [Unknown]
